FAERS Safety Report 25431630 (Version 1)
Quarter: 2025Q2

REPORT INFORMATION
  Report Type: Other
  Country: US (occurrence: US)
  Receive Date: 20250613
  Receipt Date: 20250613
  Transmission Date: 20250717
  Serious: Yes (Other)
  Sender: B BRAUN
  Company Number: US-B.Braun Medical Inc.-2178505

PATIENT
  Age: 36 Year
  Sex: Female
  Weight: 54.7 kg

DRUGS (11)
  1. LIDOCAINE HYDROCHLORIDE [Suspect]
     Active Substance: LIDOCAINE HYDROCHLORIDE
     Indication: Bronchoscopy
  2. CEFEPIME [Concomitant]
     Active Substance: CEFEPIME HYDROCHLORIDE
  3. BENZOCAINE (BENZOCAINE) [Suspect]
     Active Substance: BENZOCAINE
  4. OXYCODONE [Concomitant]
     Active Substance: OXYCODONE
  5. ONDANSETRON [Concomitant]
     Active Substance: ONDANSETRON
  6. METHYLENE BLUE [Concomitant]
     Active Substance: METHYLENE BLUE
  7. METOCLOPRAMIDE [Concomitant]
     Active Substance: METOCLOPRAMIDE
  8. MORPHINE [Concomitant]
     Active Substance: MORPHINE
  9. HYDRALAZINE [Concomitant]
     Active Substance: HYDRALAZINE HYDROCHLORIDE
  10. FAMOTIDINE [Concomitant]
     Active Substance: FAMOTIDINE
  11. DIPHENHYDRAMINE [Concomitant]
     Active Substance: DIPHENHYDRAMINE

REACTIONS (1)
  - Methaemoglobinaemia [Recovering/Resolving]
